FAERS Safety Report 4717084-3 (Version None)
Quarter: 2005Q3

REPORT INFORMATION
  Report Type: 
  Country: None (occurrence: None)
  Receive Date: 20050712
  Receipt Date: 20040721
  Transmission Date: 20060218
  Serious: Yes (Hospitalization, Other)
  Sender: FDA-Public Use
  Company Number: PHEH2004US07536

PATIENT
  Age: 65 Year
  Sex: Male

DRUGS (4)
  1. GLEEVEC [Suspect]
     Indication: HYPEREOSINOPHILIC SYNDROME
     Dosage: 100 MG, QD, ORAL;  200 MG, QD, ORAL;  300 MG, QD, ORAL;  400 MG, QD, ORAL
     Route: 048
     Dates: start: 20040601, end: 20040615
  2. GLEEVEC [Suspect]
     Indication: HYPEREOSINOPHILIC SYNDROME
     Dosage: 100 MG, QD, ORAL;  200 MG, QD, ORAL;  300 MG, QD, ORAL;  400 MG, QD, ORAL
     Route: 048
     Dates: start: 20040615, end: 20040630
  3. GLEEVEC [Suspect]
     Indication: HYPEREOSINOPHILIC SYNDROME
     Dosage: 100 MG, QD, ORAL;  200 MG, QD, ORAL;  300 MG, QD, ORAL;  400 MG, QD, ORAL
     Route: 048
     Dates: end: 20040709
  4. GLEEVEC [Suspect]
     Indication: HYPEREOSINOPHILIC SYNDROME
     Dosage: 100 MG, QD, ORAL;  200 MG, QD, ORAL;  300 MG, QD, ORAL;  400 MG, QD, ORAL
     Route: 048
     Dates: start: 20040630

REACTIONS (3)
  - HYPOXIA [None]
  - PNEUMONIA [None]
  - PNEUMONITIS [None]
